FAERS Safety Report 8197654-3 (Version None)
Quarter: 2012Q1

REPORT INFORMATION
  Report Type: 
  Country: None (occurrence: None)
  Receive Date: 20120309
  Receipt Date: 20120209
  Transmission Date: 20120608
  Serious: Yes (Death, Hospitalization)
  Sender: FDA-Public Use
  Company Number: US-ROCHE-1037748

PATIENT
  Sex: Male
  Weight: 68 kg

DRUGS (3)
  1. XELODA [Suspect]
     Indication: BILE DUCT CANCER
     Route: 048
     Dates: start: 20120124
  2. GEMCITABINE HYDROCHLORIDE [Suspect]
     Indication: BILE DUCT CANCER
     Dosage: DAY 1 AND 8
     Dates: start: 20120104, end: 20120124
  3. AVASTIN [Suspect]
     Indication: BILE DUCT CANCER
     Dosage: DAY 1 CYCLE
     Route: 042
     Dates: start: 20120104, end: 20120124

REACTIONS (7)
  - UNRESPONSIVE TO STIMULI [None]
  - INFECTION [None]
  - ABDOMINAL DISTENSION [None]
  - BILE DUCT CANCER [None]
  - ABDOMINAL PAIN [None]
  - NEOPLASM PROGRESSION [None]
  - RENAL FAILURE ACUTE [None]
